FAERS Safety Report 24789932 (Version 1)
Quarter: 2024Q4

REPORT INFORMATION
  Report Type: Spontaneous
  Country: GB (occurrence: GB)
  Receive Date: 20241230
  Receipt Date: 20241230
  Transmission Date: 20250115
  Serious: Yes (Death, Hospitalization, Other)
  Sender: MERCK
  Company Number: GB-009507513-2412GBR008877

PATIENT
  Age: 70 Year
  Sex: Female

DRUGS (1)
  1. PEMBROLIZUMAB [Suspect]
     Active Substance: PEMBROLIZUMAB
     Indication: Renal cell carcinoma
     Dosage: 3 WEEKLY CYCLE

REACTIONS (3)
  - Multiple organ dysfunction syndrome [Fatal]
  - Pneumonitis [Unknown]
  - Hospice care [Unknown]
